FAERS Safety Report 4976956-5 (Version None)
Quarter: 2006Q2

REPORT INFORMATION
  Report Type: 
  Country: None (occurrence: None)
  Receive Date: 20060413
  Receipt Date: 20060405
  Transmission Date: 20061013
  Serious: Yes (Hospitalization)
  Sender: FDA-Public Use
  Company Number: MEDI-0004368

PATIENT
  Age: 79 Year
  Sex: Male

DRUGS (1)
  1. ETHYOL [Suspect]
     Indication: NEOPLASM MALIGNANT
     Dosage: 500 MG, IV PUSH OVER 10
     Dates: start: 20060316

REACTIONS (3)
  - HYPOTENSION [None]
  - MENTAL STATUS CHANGES [None]
  - RASH [None]
